FAERS Safety Report 10157805 (Version 4)
Quarter: 2018Q4

REPORT INFORMATION
  Report Type: Report from Study
  Country: US (occurrence: US)
  Receive Date: 20140507
  Receipt Date: 20181120
  Transmission Date: 20190204
  Serious: Yes (Other)
  Sender: FDA-Public Use
  Company Number: US-SA-2014SA015262

PATIENT
  Age: 50 Year
  Sex: Male

DRUGS (3)
  1. TERIFLUNOMIDE. [Suspect]
     Active Substance: TERIFLUNOMIDE
     Dosage: 14 MG,QD
     Route: 048
     Dates: start: 20140202
  2. TERIFLUNOMIDE. [Suspect]
     Active Substance: TERIFLUNOMIDE
     Indication: MULTIPLE SCLEROSIS
     Dosage: 14 MG, QD
     Route: 048
     Dates: start: 20130811
  3. TERIFLUNOMIDE. [Suspect]
     Active Substance: TERIFLUNOMIDE
     Dosage: 7 MG,QD
     Route: 065
     Dates: start: 20131108, end: 20140201

REACTIONS (11)
  - Hypoaesthesia [Recovering/Resolving]
  - Alopecia [Unknown]
  - Multiple sclerosis [Unknown]
  - Night sweats [Unknown]
  - Abdominal pain upper [Unknown]
  - Hypertension [Unknown]
  - Limb discomfort [Unknown]
  - Nuclear magnetic resonance imaging brain abnormal [Unknown]
  - Diarrhoea [Recovered/Resolved]
  - Bronchitis [Recovered/Resolved]
  - Fatigue [Unknown]
